FAERS Safety Report 13555806 (Version 1)
Quarter: 2017Q2

REPORT INFORMATION
  Report Type: Spontaneous
  Country: US (occurrence: US)
  Receive Date: 20170517
  Receipt Date: 20170517
  Transmission Date: 20170830
  Serious: Yes (Life-Threatening, Hospitalization, Other)
  Sender: FDA-Public Use
  Company Number: US-MYLANLABS-2017M1029766

PATIENT

DRUGS (1)
  1. VERAPAMIL [Suspect]
     Active Substance: VERAPAMIL HYDROCHLORIDE
     Indication: PRODUCT USED FOR UNKNOWN INDICATION
     Dosage: 1800MG EXTENDED RELEASE
     Route: 048

REACTIONS (5)
  - Toxicity to various agents [Recovered/Resolved]
  - Electrocardiogram abnormal [Recovered/Resolved]
  - Supraventricular tachycardia [Recovered/Resolved]
  - Atrioventricular block complete [Recovered/Resolved]
  - Overdose [Recovered/Resolved]
